FAERS Safety Report 9561764 (Version 1)
Quarter: 2013Q3

REPORT INFORMATION
  Report Type: Spontaneous
  Country: US (occurrence: US)
  Receive Date: 20130927
  Receipt Date: 20130927
  Transmission Date: 20140515
  Serious: No
  Sender: FDA-Public Use
  Company Number: US-BIOGENIDEC-2013BI063224

PATIENT
  Age: 48 Year
  Sex: Female

DRUGS (2)
  1. TECFIDERA [Suspect]
     Indication: MULTIPLE SCLEROSIS
     Route: 048
     Dates: start: 20130616, end: 20130622
  2. TECFIDERA [Suspect]
     Indication: MULTIPLE SCLEROSIS
     Route: 048
     Dates: start: 20130623, end: 20130625

REACTIONS (8)
  - Chest discomfort [Recovered/Resolved]
  - Gastrooesophageal reflux disease [Recovered/Resolved]
  - Flushing [Recovered/Resolved]
  - Suicidal ideation [Recovered/Resolved]
  - Morbid thoughts [Recovered/Resolved]
  - Sleep disorder [Recovered/Resolved]
  - Depression [Recovered/Resolved]
  - Contusion [Not Recovered/Not Resolved]
